FAERS Safety Report 19083257 (Version 1)
Quarter: 2021Q2

REPORT INFORMATION
  Report Type: Spontaneous
  Country: US (occurrence: US)
  Receive Date: 20210401
  Receipt Date: 20210401
  Transmission Date: 20210717
  Serious: Yes (Death)
  Sender: FDA-Public Use
  Company Number: None

PATIENT
  Sex: Male

DRUGS (11)
  1. MAGNESIUM OXIDE 400 MG [Concomitant]
     Active Substance: MAGNESIUM OXIDE
     Dates: start: 20191111, end: 20210327
  2. PHOSPHA 250 NEUTRAL TABLETS [Concomitant]
     Dates: start: 20191028, end: 20210327
  3. METOPROLOL TARTRATE 25 MG [Concomitant]
     Active Substance: METOPROLOL TARTRATE
     Dates: start: 20191022, end: 20210327
  4. DOCUSATE SODIUM 100 MG [Concomitant]
     Dates: start: 20191118, end: 20210327
  5. MYCOPHENOLIC ACID. [Suspect]
     Active Substance: MYCOPHENOLIC ACID
     Indication: RENAL TRANSPLANT
     Route: 048
     Dates: start: 20191014, end: 20210327
  6. TACROLIMUS. [Suspect]
     Active Substance: TACROLIMUS
     Indication: RENAL TRANSPLANT
     Dosage: ?          OTHER FREQUENCY:2MG QAM, 2.5MG QPM;?
     Route: 048
     Dates: start: 20191014, end: 20210327
  7. FUROSEMIDE 20 MG [Concomitant]
     Active Substance: FUROSEMIDE
     Dates: start: 20200316, end: 20210327
  8. ALENDRONATE [Concomitant]
     Active Substance: ALENDRONATE SODIUM
     Dates: start: 20200213, end: 20210327
  9. ATORVASTATIN 10 MG [Concomitant]
     Active Substance: ATORVASTATIN
     Dates: start: 20191018, end: 20210327
  10. AMIODARONE 200 MG [Concomitant]
     Active Substance: AMIODARONE
     Dates: start: 20191029, end: 20210102
  11. HYDRALAZINE 25 MG [Concomitant]
     Active Substance: HYDRALAZINE HYDROCHLORIDE
     Dates: start: 20200108, end: 20210327

REACTIONS (1)
  - COVID-19 [None]
